FAERS Safety Report 24537759 (Version 1)
Quarter: 2024Q4

REPORT INFORMATION
  Report Type: Spontaneous
  Country: UA (occurrence: UA)
  Receive Date: 20241023
  Receipt Date: 20241023
  Transmission Date: 20250115
  Serious: Yes (Other)
  Sender: JOHNSON AND JOHNSON
  Company Number: UA-BAYER-2024A143842

PATIENT
  Age: 61 Year

DRUGS (1)
  1. XARELTO [Suspect]
     Active Substance: RIVAROXABAN
     Indication: Product used for unknown indication
     Dosage: 20 MG
     Route: 048

REACTIONS (10)
  - Blood disorder [Recovering/Resolving]
  - General physical health deterioration [Recovering/Resolving]
  - Angina pectoris [Recovering/Resolving]
  - Haemorrhage [Unknown]
  - Arthralgia [Recovering/Resolving]
  - Dyspnoea [Recovering/Resolving]
  - Pain in extremity [Recovering/Resolving]
  - Product blister packaging issue [Unknown]
  - Suspected counterfeit product [Unknown]
  - Exercise tolerance decreased [Recovering/Resolving]

NARRATIVE: CASE EVENT DATE: 20240101
